FAERS Safety Report 16538402 (Version 1)
Quarter: 2019Q3

REPORT INFORMATION
  Report Type: Spontaneous
  Country: US (occurrence: US)
  Receive Date: 20190523
  Receipt Date: 20190523
  Transmission Date: 20191004
  Serious: Yes (Hospitalization, Other)
  Sender: FDA-Public Use
  Company Number: None

PATIENT
  Age: 58 Year
  Sex: Male
  Weight: 105.2 kg

DRUGS (2)
  1. TEMOZOLOMIDE. [Suspect]
     Active Substance: TEMOZOLOMIDE
     Indication: GLIOBLASTOMA
     Dosage: ?          OTHER DOSE:25MG/M2; 60MG;?
     Route: 048
     Dates: start: 20190215, end: 20190506
  2. NANOLIPOSOMAL IRINOTECAN 113.5MG [Suspect]
     Active Substance: IRINOTECAN
     Indication: GLIOBLASTOMA
     Dosage: ?          OTHER DOSE:50MG/M2; 113.5MG ;OTHER FREQUENCY:Q 2 WEEKS;?
     Route: 042
     Dates: start: 20190205, end: 20190430

REACTIONS (2)
  - Clostridium difficile infection [None]
  - Toxicity to various agents [None]

NARRATIVE: CASE EVENT DATE: 20190510
